FAERS Safety Report 6933477-8 (Version None)
Quarter: 2010Q3

REPORT INFORMATION
  Report Type: 
  Country: None (occurrence: None)
  Receive Date: 20100820
  Receipt Date: 20100813
  Transmission Date: 20110219
  Serious: Yes (Other)
  Sender: FDA-Public Use
  Company Number: US-PFIZER INC-2010102592

PATIENT
  Sex: Female

DRUGS (2)
  1. XANAX [Suspect]
     Dosage: 6 MG, 1X/DAY
  2. BUPROPION [Suspect]
     Dosage: UNK

REACTIONS (2)
  - CONVULSION [None]
  - DEPRESSED MOOD [None]
